FAERS Safety Report 7734371-5 (Version None)
Quarter: 2011Q3

REPORT INFORMATION
  Report Type: 
  Country: None (occurrence: None)
  Receive Date: 20110907
  Receipt Date: 20110902
  Transmission Date: 20111222
  Serious: Yes (Death, Life-Threatening, Hospitalization)
  Sender: FDA-Public Use
  Company Number: JP-PFIZER INC-2011116904

PATIENT
  Age: 71 Year
  Sex: Male
  Weight: 60 kg

DRUGS (12)
  1. TEMSIROLIMUS [Suspect]
     Dosage: 25 MG, WEEKLY
     Dates: start: 20110215
  2. TEMSIROLIMUS [Suspect]
     Dosage: 25 MG, WEEKLY
     Dates: start: 20110222, end: 20110308
  3. OXYCONTIN [Concomitant]
     Dosage: 30 MG, 1X/DAY
     Route: 048
     Dates: start: 20110204, end: 20110301
  4. FENTANYL [Concomitant]
     Indication: PAIN
     Dosage: 4.2 MG, EVERY 72 HOURS
     Dates: start: 20110301, end: 20110307
  5. OXYCONTIN [Concomitant]
     Indication: PAIN
     Dosage: 25 MG, 1X/DAY
     Route: 048
     Dates: end: 20110203
  6. DIPHENHYDRAMINE HYDROCHLORIDE [Concomitant]
     Indication: PROPHYLAXIS
     Dosage: UNK MG, 1X/DAY
     Route: 048
  7. DECADRON [Concomitant]
     Indication: PAIN
     Dosage: 2 MG, 1X/DAY
     Route: 048
  8. TEMSIROLIMUS [Suspect]
     Indication: RENAL CELL CARCINOMA
     Dosage: 25 MG
     Dates: start: 20110125, end: 20110125
  9. TEMSIROLIMUS [Suspect]
     Dosage: 25 MG
     Dates: start: 20110201, end: 20110201
  10. TEMSIROLIMUS [Suspect]
     Dosage: 25 MG, WEEKLY
     Dates: start: 20110208
  11. FENTANYL [Concomitant]
     Dosage: 12.6 MG EVERY 72 HOURS
     Dates: start: 20110322, end: 20110329
  12. FENTANYL [Concomitant]
     Dosage: 8.4 MG EVERY 72 HOURS
     Dates: start: 20110308, end: 20110321

REACTIONS (9)
  - DISEASE PROGRESSION [None]
  - GAIT DISTURBANCE [None]
  - RENAL CELL CARCINOMA [None]
  - C-REACTIVE PROTEIN INCREASED [None]
  - BACK PAIN [None]
  - INTERSTITIAL LUNG DISEASE [None]
  - NEUTROPHIL PERCENTAGE INCREASED [None]
  - LYMPHOCYTE PERCENTAGE INCREASED [None]
  - PROTEIN TOTAL DECREASED [None]
